FAERS Safety Report 4340975-2 (Version None)
Quarter: 2004Q2

REPORT INFORMATION
  Report Type: 
  Country: None (occurrence: None)
  Receive Date: 20040413
  Receipt Date: 20040405
  Transmission Date: 20050107
  Serious: Yes (Death)
  Sender: FDA-Public Use
  Company Number: 2004AC00065

PATIENT
  Age: 10 Year
  Sex: Male

DRUGS (1)
  1. PROPOFOL [Suspect]

REACTIONS (1)
  - INFUSION RELATED REACTION [None]
